FAERS Safety Report 7998010-0 (Version None)
Quarter: 2011Q4

REPORT INFORMATION
  Report Type: 
  Country: None (occurrence: None)
  Receive Date: 20111221
  Receipt Date: 20101111
  Transmission Date: 20120403
  Serious: No
  Sender: FDA-Public Use
  Company Number: US-GLAXOSMITHKLINE-A0892017A

PATIENT
  Age: 87 Year
  Sex: Female

DRUGS (9)
  1. DIOVAN [Concomitant]
  2. LANTUS [Concomitant]
  3. VITAMIN B COMPLEX WITH C [Concomitant]
  4. RANITIDINE [Concomitant]
  5. PROPRANOLOL [Concomitant]
  6. ACIDOPHILIS [Concomitant]
  7. LOVAZA [Suspect]
     Indication: BLOOD CHOLESTEROL INCREASED
     Dosage: 2CAP PER DAY
     Route: 048
     Dates: start: 20101027
  8. ULORIC [Concomitant]
  9. ASPIRIN [Concomitant]

REACTIONS (2)
  - HEADACHE [None]
  - MUSCULOSKELETAL STIFFNESS [None]
